FAERS Safety Report 9155721 (Version 1)
Quarter: 2013Q1

REPORT INFORMATION
  Report Type: Spontaneous
  Country: FR (occurrence: FR)
  Receive Date: 20130311
  Receipt Date: 20130311
  Transmission Date: 20140127
  Serious: Yes (Hospitalization)
  Sender: FDA-Public Use
  Company Number: PHHY2013FR015550

PATIENT
  Age: 62 Year
  Sex: Female

DRUGS (13)
  1. TASIGNA [Suspect]
     Indication: CHRONIC MYELOID LEUKAEMIA
     Dosage: 600 MG, DAILY
     Route: 048
     Dates: start: 20130107, end: 20130113
  2. LEVOTHYROX [Concomitant]
     Dosage: 150 UG, QD
  3. RAMIPRIL [Concomitant]
     Dosage: 5 MG, QD
  4. TRIMEBUTINE [Concomitant]
     Dosage: UNK, PRN
  5. CRESTOR [Concomitant]
     Dosage: 5 MG, QD
  6. CARDIOCALM [Concomitant]
     Dosage: UNK, TID
  7. MIRTAZAPINE [Concomitant]
     Dosage: 7.5 MG, BID
  8. SELOKEN [Concomitant]
     Dosage: 200 MG, QD
  9. ONGLYZA [Concomitant]
     Dosage: 5 MG, QD
  10. LORAZEPAM [Concomitant]
     Dosage: 2.5 MG, QD
  11. SPIRONOLACTONE [Concomitant]
     Dosage: 50 MG, QD
  12. ESOMEPRAZOLE [Concomitant]
     Dosage: 20 MG, QD
     Route: 048
  13. ESOMEPRAZOLE [Concomitant]
     Dosage: 40 MG, DAILY
     Route: 048

REACTIONS (9)
  - Pancreatitis acute [Recovered/Resolved]
  - Abdominal pain upper [Unknown]
  - Food intolerance [Unknown]
  - Lipase increased [Unknown]
  - Nausea [Unknown]
  - Vomiting [Unknown]
  - Renal cyst [Unknown]
  - Dyspepsia [Unknown]
  - Weight decreased [Unknown]
